FAERS Safety Report 4574549-5 (Version None)
Quarter: 2005Q1

REPORT INFORMATION
  Report Type: 
  Country: None (occurrence: None)
  Receive Date: 20050208
  Receipt Date: 20031125
  Transmission Date: 20050727
  Serious: No
  Sender: FDA-Public Use
  Company Number: US-GLAXOSMITHKLINE-A0441108A

PATIENT
  Age: 42 Year
  Sex: Male
  Weight: 86.4 kg

DRUGS (4)
  1. PAXIL [Suspect]
     Indication: DRUG USE FOR UNKNOWN INDICATION
     Route: 048
  2. ZYRTEC-D 12 HOUR [Concomitant]
  3. CALCIUM GLUCONATE [Concomitant]
     Dosage: 600MG PER DAY
  4. CENTRUM [Concomitant]

REACTIONS (1)
  - EJACULATION DELAYED [None]
